FAERS Safety Report 20610770 (Version 1)
Quarter: 2022Q1

REPORT INFORMATION
  Report Type: Spontaneous
  Country: US (occurrence: None)
  Receive Date: 20220317
  Receipt Date: 20220317
  Transmission Date: 20220424
  Serious: Yes (Death)
  Sender: FDA-Public Use
  Company Number: None

PATIENT
  Age: 61 Year
  Sex: Female

DRUGS (1)
  1. REMDESIVIR [Suspect]
     Active Substance: REMDESIVIR
     Indication: COVID-19
     Dates: start: 20220302, end: 20220306

REACTIONS (8)
  - Abdominal pain upper [None]
  - Gastrointestinal haemorrhage [None]
  - Thrombosis [None]
  - Vascular rupture [None]
  - Blood pressure decreased [None]
  - Heart rate decreased [None]
  - Septic shock [None]
  - Gastrointestinal ischaemia [None]

NARRATIVE: CASE EVENT DATE: 20220307
